FAERS Safety Report 7572108-3 (Version None)
Quarter: 2011Q2

REPORT INFORMATION
  Report Type: 
  Country: None (occurrence: None)
  Receive Date: 20110624
  Receipt Date: 20110321
  Transmission Date: 20111010
  Serious: Yes (Hospitalization, Other)
  Sender: FDA-Public Use
  Company Number: US-PFIZER INC-2011121543

PATIENT
  Sex: Male

DRUGS (2)
  1. CIPROFLOXACIN [Concomitant]
  2. LIPITOR [Suspect]
     Dosage: 10 MG, 1X/DAY
     Route: 048
     Dates: start: 20090101, end: 20110201

REACTIONS (8)
  - BLOOD PRESSURE DECREASED [None]
  - INFLUENZA [None]
  - DIARRHOEA [None]
  - DIZZINESS [None]
  - BLOOD GLUCOSE DECREASED [None]
  - SOMNOLENCE [None]
  - CANDIDIASIS [None]
  - WEIGHT DECREASED [None]
